FAERS Safety Report 11645158 (Version 4)
Quarter: 2015Q4

REPORT INFORMATION
  Report Type: Report from Study
  Country: MX (occurrence: MX)
  Receive Date: 20151020
  Receipt Date: 20151028
  Transmission Date: 20160304
  Serious: Yes (Death)
  Sender: FDA-Public Use
  Company Number: PHHY2015MX135016

PATIENT
  Sex: Male

DRUGS (3)
  1. SEEBRI BREEZHALER [Suspect]
     Active Substance: GLYCOPYRROLATE
     Indication: CHRONIC OBSTRUCTIVE PULMONARY DISEASE
     Dosage: 300 UG, QD
     Route: 055
  2. SALBUTAMOL [Concomitant]
     Active Substance: ALBUTEROL
     Indication: CHRONIC OBSTRUCTIVE PULMONARY DISEASE
     Dosage: 2 DF (APPLICATION), QD
     Route: 055
  3. ONBREZ BREEZHALER [Suspect]
     Active Substance: INDACATEROL
     Indication: CHRONIC OBSTRUCTIVE PULMONARY DISEASE
     Dosage: 300 UG, QD
     Route: 055

REACTIONS (2)
  - Pneumonia [Fatal]
  - Chronic obstructive pulmonary disease [Fatal]
